FAERS Safety Report 8183022-7 (Version None)
Quarter: 2012Q1

REPORT INFORMATION
  Report Type: 
  Country: None (occurrence: None)
  Receive Date: 20120305
  Receipt Date: 20120229
  Transmission Date: 20120608
  Serious: Yes (Death)
  Sender: FDA-Public Use
  Company Number: US-CELGENEUS-163-21880-12030088

PATIENT
  Sex: Female

DRUGS (9)
  1. REVLIMID [Suspect]
     Indication: MULTIPLE MYELOMA
     Dosage: 10 MILLIGRAM
     Route: 048
     Dates: start: 20120130, end: 20120101
  2. AVAPRO [Concomitant]
     Dosage: 300 MILLIGRAM
     Route: 048
  3. OXYCODONE HCL [Concomitant]
     Dosage: 20 MILLIGRAM
     Route: 048
  4. PROMETHAZINE [Concomitant]
     Dosage: 12.5 MILLIGRAM
     Route: 065
  5. PROAIR HFA [Concomitant]
     Route: 055
  6. BUSPAR [Concomitant]
     Dosage: 15 MILLIGRAM
     Route: 048
  7. CITALOPRAM HYDROBROMIDE [Concomitant]
     Dosage: 20 MILLIGRAM
     Route: 048
  8. DEXAMETHASONE [Concomitant]
     Dosage: 1 MILLIGRAM
     Route: 048
  9. LOVASTATIN [Concomitant]
     Dosage: 40 MILLIGRAM
     Route: 048

REACTIONS (1)
  - DEATH [None]
